FAERS Safety Report 6111072-0 (Version None)
Quarter: 2009Q1

REPORT INFORMATION
  Report Type: 
  Country: None (occurrence: None)
  Receive Date: 20090306
  Receipt Date: 20090306
  Transmission Date: 20090719
  Serious: No
  Sender: FDA-Public Use
  Company Number: None

PATIENT
  Age: 48 Year
  Sex: Male
  Weight: 97.07 kg

DRUGS (1)
  1. NIFEDIPINE [Suspect]
     Indication: HYPERTENSION
     Dosage: 60 MG EVERY DAY PO
     Route: 048
     Dates: start: 20070116, end: 20090128

REACTIONS (1)
  - OEDEMA PERIPHERAL [None]
